FAERS Safety Report 22325842 (Version 2)
Quarter: 2023Q2

REPORT INFORMATION
  Report Type: Spontaneous
  Country: US (occurrence: US)
  Receive Date: 20230516
  Receipt Date: 20230524
  Transmission Date: 20230721
  Serious: No
  Sender: FDA-Public Use
  Company Number: US-PFIZER INC-US-GBT-021755

PATIENT
  Age: 40 Year
  Sex: Female

DRUGS (3)
  1. OXBRYTA [Suspect]
     Active Substance: VOXELOTOR
     Indication: Sickle cell disease
     Dosage: 500 MG, 1X/DAY
     Route: 048
     Dates: start: 20230411, end: 20230417
  2. OXBRYTA [Suspect]
     Active Substance: VOXELOTOR
     Dosage: 1000 MG, 1X/DAY (2 500MG TABLETS X1 WEEK)
     Dates: start: 20230418, end: 20230424
  3. OXBRYTA [Suspect]
     Active Substance: VOXELOTOR
     Dosage: 1500 MG, DAILY
     Route: 048
     Dates: start: 20230425

REACTIONS (7)
  - Off label use [Unknown]
  - Abdominal pain [Unknown]
  - Energy increased [Unknown]
  - Abdominal pain upper [Unknown]
  - Flatulence [Unknown]
  - Abdominal distension [Unknown]
  - Muscle spasms [Unknown]

NARRATIVE: CASE EVENT DATE: 20230411
